FAERS Safety Report 18758134 (Version 1)
Quarter: 2021Q1

REPORT INFORMATION
  Report Type: Spontaneous
  Country: US (occurrence: US)
  Receive Date: 20210119
  Receipt Date: 20210119
  Transmission Date: 20210419
  Serious: No
  Sender: FDA-Public Use
  Company Number: US-PFIZER INC-2019-06545

PATIENT
  Age: 69 Year
  Sex: Male

DRUGS (3)
  1. BRAFTOVI [Suspect]
     Active Substance: ENCORAFENIB
     Indication: NEOPLASM MALIGNANT
     Dosage: 450 MG, 1X/DAY
     Route: 048
     Dates: start: 20190315
  2. BRAFTOVI [Suspect]
     Active Substance: ENCORAFENIB
     Dosage: 2700 MG, DAILY (TAKE 6 CAPSULES BY MOUTH DAILY)
     Route: 048
  3. MEKTOVI [Suspect]
     Active Substance: BINIMETINIB
     Indication: NEOPLASM MALIGNANT
     Dosage: 45 MG, 2X/DAY
     Route: 048
     Dates: start: 20190315

REACTIONS (1)
  - Pruritus [Recovered/Resolved]
